FAERS Safety Report 23080659 (Version 3)
Quarter: 2024Q1

REPORT INFORMATION
  Report Type: Report from Study
  Country: US (occurrence: US)
  Receive Date: 20231018
  Receipt Date: 20240304
  Transmission Date: 20240410
  Serious: Yes (Other)
  Sender: FDA-Public Use
  Company Number: US-ARGENX-2023-ARGX-US002638AA

PATIENT

DRUGS (13)
  1. VYVGART [Suspect]
     Active Substance: EFGARTIGIMOD ALFA-FCAB
     Indication: Myasthenia gravis
     Dosage: UNK
     Route: 042
     Dates: start: 20230619
  2. VYVGART [Suspect]
     Active Substance: EFGARTIGIMOD ALFA-FCAB
     Dosage: 10 MG/KG, 1/WEEK; VYVGART 400MG/20ML
     Route: 042
  3. ECOTRIN [Concomitant]
     Active Substance: ASPIRIN
     Indication: Product used for unknown indication
     Dosage: 81 MG, DAILY
     Route: 048
  4. VITAMIN D3 [Concomitant]
     Active Substance: CHOLECALCIFEROL
     Indication: Product used for unknown indication
     Dosage: 50000 UNITS EVERY SEVEN DAYS
     Route: 048
  5. ZETIA [Concomitant]
     Active Substance: EZETIMIBE
     Indication: Product used for unknown indication
     Dosage: 10 MG, DAILY
     Route: 048
  6. CHILDREN^S FLONASE SENSIMIST ALLERGY RELIEF [Concomitant]
     Indication: Product used for unknown indication
     Dosage: 27.5MCG/ACTUATION NASAL SPRAY; USE 2 SPRAYS IN 5.9 ML EACH NOSTRILS
     Route: 048
  7. SYNTHROID [Concomitant]
     Active Substance: LEVOTHYROXINE SODIUM
     Indication: Product used for unknown indication
     Dosage: 150 UG, DAILY
     Route: 048
  8. GLUCOPHAGE XR [Concomitant]
     Active Substance: METFORMIN HYDROCHLORIDE
     Indication: Product used for unknown indication
     Dosage: 500 MG, DAILY
     Route: 065
  9. PATADAY [Concomitant]
     Active Substance: OLOPATADINE HYDROCHLORIDE
     Indication: Product used for unknown indication
     Dosage: 2.5 ML, BID INSTILL ONE DROP IN EACH EYE
     Route: 047
  10. OZEMPIC [Concomitant]
     Active Substance: SEMAGLUTIDE
     Indication: Product used for unknown indication
     Dosage: 0.5 MG INJECT JUST UNDER THE SKIN EVERY SEVEN DAYS
     Route: 065
  11. OZEMPIC [Concomitant]
     Active Substance: SEMAGLUTIDE
     Dosage: 0.25 MG INJECT JUST UNDER THE SKIN EVERY SEVEN DAYS
     Route: 065
  12. NORWEGIAN COD LIVER OIL [Concomitant]
     Indication: Product used for unknown indication
     Dosage: UNK 1250-135 UNIT
     Route: 065
  13. METHOTREXATE [Concomitant]
     Active Substance: METHOTREXATE
     Indication: Rheumatoid arthritis
     Dosage: UNK
     Route: 065

REACTIONS (17)
  - Choking [Recovered/Resolved]
  - Nausea [Recovered/Resolved]
  - Rash vesicular [Recovered/Resolved]
  - Therapeutic product ineffective [Not Recovered/Not Resolved]
  - Procedural headache [Recovered/Resolved]
  - Myasthenia gravis [Recovered/Resolved]
  - Dysarthria [Recovered/Resolved]
  - Muscular weakness [Recovered/Resolved]
  - Muscle twitching [Recovered/Resolved]
  - Blepharospasm [Recovered/Resolved]
  - Asthenopia [Recovered/Resolved]
  - Body temperature increased [Recovered/Resolved]
  - Mastication disorder [Recovered/Resolved]
  - Dyspnoea [Recovered/Resolved]
  - Folliculitis [Recovered/Resolved]
  - COVID-19 [Recovered/Resolved]
  - Fatigue [Recovered/Resolved]

NARRATIVE: CASE EVENT DATE: 20230601
